FAERS Safety Report 13039504 (Version 1)
Quarter: 2016Q4

REPORT INFORMATION
  Report Type: Spontaneous
  Country: TR (occurrence: TR)
  Receive Date: 20161219
  Receipt Date: 20161219
  Transmission Date: 20170207
  Serious: Yes (Hospitalization)
  Sender: FDA-Public Use
  Company Number: TR-SCIEGEN PHARMACEUTICALS INC-2016SCILIT00624

PATIENT
  Age: 84 Year
  Sex: Female

DRUGS (3)
  1. RAMIPRIL. [Concomitant]
     Active Substance: RAMIPRIL
     Indication: HYPERTENSION
     Dosage: 5 MG, UNK
     Route: 065
  2. ACETYLSALICYLIC ACID [Concomitant]
     Active Substance: ASPIRIN
     Indication: CORONARY ARTERY DISEASE
     Dosage: 100 MG, UNK
     Route: 065
  3. DONEPEZIL HYDROCHLORIDE TABLETS, USP [Suspect]
     Active Substance: DONEPEZIL HYDROCHLORIDE
     Indication: DEMENTIA ALZHEIMER^S TYPE
     Dosage: 10 MG, UNK
     Route: 065

REACTIONS (17)
  - Chorioretinal atrophy [Unknown]
  - Electrocardiogram T wave inversion [Unknown]
  - Somnolence [Unknown]
  - Nausea [Unknown]
  - Palpitations [Unknown]
  - Motor dysfunction [Unknown]
  - Mitral valve incompetence [Unknown]
  - Syncope [Unknown]
  - Tricuspid valve incompetence [Unknown]
  - Torsade de pointes [Unknown]
  - Vomiting [Unknown]
  - Atrial fibrillation [Unknown]
  - Electrocardiogram QT prolonged [Unknown]
  - Electrocardiogram QRS complex prolonged [Unknown]
  - Left ventricular hypertrophy [Unknown]
  - Haemodynamic instability [Unknown]
  - Hypertension [Unknown]
